FAERS Safety Report 10501558 (Version 1)
Quarter: 2014Q4

REPORT INFORMATION
  Report Type: Spontaneous
  Country: US (occurrence: None)
  Receive Date: 20141006
  Receipt Date: 20141006
  Transmission Date: 20150528
  Serious: No
  Sender: FDA-Public Use
  Company Number: None

PATIENT
  Age: 70 Year
  Sex: Female

DRUGS (1)
  1. FORTEO [Suspect]
     Active Substance: TERIPARATIDE
     Route: 058
     Dates: start: 20140812, end: 20140925

REACTIONS (3)
  - Nausea [None]
  - Dizziness [None]
  - Muscle spasms [None]

NARRATIVE: CASE EVENT DATE: 20140920
